FAERS Safety Report 6715263-7 (Version None)
Quarter: 2010Q2

REPORT INFORMATION
  Report Type: 
  Country: None (occurrence: None)
  Receive Date: 20100506
  Receipt Date: 20100506
  Transmission Date: 20101027
  Serious: Yes (Life-Threatening, Hospitalization, Disabling)
  Sender: FDA-Public Use
  Company Number: None

PATIENT
  Age: 76 Year
  Sex: Male
  Weight: 77.1115 kg

DRUGS (5)
  1. SIMVASTATIN [Suspect]
     Indication: BLOOD CHOLESTEROL ABNORMAL
     Dosage: 40 MG ONCE A DAY ORAL
     Route: 048
  2. GEMFIBROZIL [Suspect]
     Indication: BLOOD CHOLESTEROL ABNORMAL
     Dosage: 600 MG TWICE A DAY ORAL
     Route: 048
  3. ATENOLOL [Concomitant]
  4. LISINOPRIL TABS [Concomitant]
  5. METFORMIN HCL [Concomitant]

REACTIONS (2)
  - ASTHENIA [None]
  - GAIT DISTURBANCE [None]
